FAERS Safety Report 17829699 (Version 1)
Quarter: 2020Q2

REPORT INFORMATION
  Report Type: Spontaneous
  Country: FR (occurrence: FR)
  Receive Date: 20200527
  Receipt Date: 20200527
  Transmission Date: 20200714
  Serious: Yes (Other)
  Sender: FDA-Public Use
  Company Number: FR-PFIZER INC-2020206953

PATIENT
  Age: 70 Year
  Sex: Male

DRUGS (9)
  1. KARDEGIC [Concomitant]
     Active Substance: ASPIRIN DL-LYSINE
     Dosage: UNK
  2. INEXIUM [ESOMEPRAZOLE MAGNESIUM] [Suspect]
     Active Substance: ESOMEPRAZOLE MAGNESIUM
     Indication: ARTHRITIS BACTERIAL
     Dosage: UNK
     Route: 048
     Dates: start: 20180625, end: 20180628
  3. DALACINE [Suspect]
     Active Substance: CLINDAMYCIN
     Dosage: UNK
     Route: 048
     Dates: start: 20180625
  4. PARACETAMOL [Concomitant]
     Active Substance: ACETAMINOPHEN
     Indication: ARTHRITIS BACTERIAL
     Dosage: UNK
     Route: 048
     Dates: start: 20180625, end: 20180628
  5. BIPROFENID [Suspect]
     Active Substance: KETOPROFEN
     Indication: ARTHRITIS BACTERIAL
     Dosage: UNK
     Route: 048
     Dates: start: 20180625, end: 20180628
  6. AUGMENTIN [Suspect]
     Active Substance: AMOXICILLIN\CLAVULANATE POTASSIUM
     Indication: ARTHRITIS BACTERIAL
     Dosage: UNK
     Route: 048
     Dates: start: 20180625, end: 20180628
  7. MODOPAR [Concomitant]
     Active Substance: BENSERAZIDE HYDROCHLORIDE\LEVODOPA
     Dosage: UNK
  8. VALSARTAN. [Concomitant]
     Active Substance: VALSARTAN
     Dosage: UNK
  9. CRESTOR [Concomitant]
     Active Substance: ROSUVASTATIN CALCIUM
     Dosage: UNK

REACTIONS (1)
  - Toxic skin eruption [Recovered/Resolved]

NARRATIVE: CASE EVENT DATE: 20180627
